FAERS Safety Report 7701110-3 (Version None)
Quarter: 2011Q3

REPORT INFORMATION
  Report Type: 
  Country: None (occurrence: None)
  Receive Date: 20110817
  Receipt Date: 20110805
  Transmission Date: 20111222
  Serious: Yes (Other)
  Sender: FDA-Public Use
  Company Number: 019045

PATIENT
  Age: 79 Year
  Sex: Male

DRUGS (6)
  1. AVASTIN [Suspect]
  2. MACUGEN [Suspect]
     Indication: MACULAR OEDEMA
     Dosage: INTRAOCULAR, INTRAOCULAR
     Route: 031
     Dates: start: 20110104, end: 20110104
  3. MACUGEN [Suspect]
     Indication: RETINAL VEIN OCCLUSION
     Dosage: INTRAOCULAR, INTRAOCULAR
     Route: 031
     Dates: start: 20110104, end: 20110104
  4. MACUGEN [Suspect]
     Indication: MACULAR OEDEMA
     Dosage: INTRAOCULAR, INTRAOCULAR
     Route: 031
     Dates: start: 20101116, end: 20101116
  5. MACUGEN [Suspect]
     Indication: RETINAL VEIN OCCLUSION
     Dosage: INTRAOCULAR, INTRAOCULAR
     Route: 031
     Dates: start: 20101116, end: 20101116
  6. LEVOFLOXACIN [Concomitant]

REACTIONS (1)
  - OCULAR HYPERTENSION [None]
